FAERS Safety Report 8425658-1 (Version None)
Quarter: 2012Q2

REPORT INFORMATION
  Report Type: 
  Country: None (occurrence: None)
  Receive Date: 20120611
  Receipt Date: 20120605
  Transmission Date: 20120825
  Serious: Yes (Hospitalization)
  Sender: FDA-Public Use
  Company Number: PHHY2009US66505

PATIENT
  Sex: Female
  Weight: 63.039 kg

DRUGS (5)
  1. PENICILLIN VK [Concomitant]
     Dosage: 250 MG, UNK
     Route: 048
  2. FOLIC ACID [Concomitant]
  3. MULTI-TABS [Concomitant]
  4. EXJADE [Suspect]
     Dosage: 25 MG/KG, DAY
  5. EXJADE [Suspect]
     Indication: SICKLE CELL ANAEMIA
     Dosage: 1750 MG, QD
     Route: 048

REACTIONS (5)
  - ABDOMINAL DISCOMFORT [None]
  - RASH [None]
  - VIRAL INFECTION [None]
  - OVARIAN CYST [None]
  - ABDOMINAL PAIN [None]
